FAERS Safety Report 5657750-9 (Version None)
Quarter: 2008Q1

REPORT INFORMATION
  Report Type: 
  Country: None (occurrence: None)
  Receive Date: 20080305
  Receipt Date: 20080218
  Transmission Date: 20080703
  Serious: Yes (Life-Threatening)
  Sender: FDA-Public Use
  Company Number: 2008S1002753

PATIENT
  Sex: Male

DRUGS (2)
  1. CEFTRIAXONE [Suspect]
     Indication: DRUG USE FOR UNKNOWN INDICATION
  2. CIPROFLOXACIN [Suspect]
     Indication: DRUG USE FOR UNKNOWN INDICATION

REACTIONS (1)
  - GRANULOCYTOPENIA [None]
